FAERS Safety Report 4962895-2 (Version None)
Quarter: 2006Q2

REPORT INFORMATION
  Report Type: 
  Country: None (occurrence: None)
  Receive Date: 20060405
  Receipt Date: 20060324
  Transmission Date: 20061013
  Serious: Yes (Other)
  Sender: FDA-Public Use
  Company Number: DE-BRISTOL-MYERS SQUIBB COMPANY-13327572

PATIENT
  Age: 49 Year
  Sex: Female
  Weight: 81 kg

DRUGS (4)
  1. TAXOL [Suspect]
     Indication: OVARIAN CANCER
     Dates: start: 20051207, end: 20051207
  2. TAVEGIL [Concomitant]
     Indication: PREMEDICATION
  3. SOSTRIL [Concomitant]
     Indication: PREMEDICATION
  4. DEXAMETHASONE TAB [Concomitant]
     Indication: PREMEDICATION

REACTIONS (5)
  - ANXIETY [None]
  - BACK PAIN [None]
  - DYSPNOEA [None]
  - HYPERHIDROSIS [None]
  - RASH [None]
